FAERS Safety Report 9219043 (Version 2)
Quarter: 2013Q2

REPORT INFORMATION
  Report Type: Spontaneous
  Country: NL (occurrence: NL)
  Receive Date: 20130409
  Receipt Date: 20130416
  Transmission Date: 20140414
  Serious: Yes (Hospitalization, Other)
  Sender: FDA-Public Use
  Company Number: PHHY2013NL032881

PATIENT
  Age: 54 Year
  Sex: Female

DRUGS (1)
  1. CLOZAPINE [Suspect]
     Indication: SCHIZOPHRENIA
     Dosage: 900 MG,

REACTIONS (7)
  - Respiratory tract infection [Unknown]
  - Influenza [Unknown]
  - Superinfection bacterial [Unknown]
  - Ileus [Unknown]
  - Constipation [Unknown]
  - Diarrhoea [Unknown]
  - Antipsychotic drug level increased [Unknown]
